FAERS Safety Report 5388029-0 (Version None)
Quarter: 2007Q3

REPORT INFORMATION
  Report Type: 
  Country: None (occurrence: None)
  Receive Date: 20070716
  Receipt Date: 20070711
  Transmission Date: 20080115
  Serious: Yes (Death, Other)
  Sender: FDA-Public Use
  Company Number: JP-SANOFI-SYNTHELABO-F01200700865

PATIENT
  Sex: Male

DRUGS (13)
  1. ASPIRIN [Concomitant]
  2. RADICUT [Concomitant]
     Route: 042
     Dates: start: 20070615, end: 20070618
  3. RADICUT [Concomitant]
     Route: 042
     Dates: start: 20070615, end: 20070621
  4. KETOPROFEN [Concomitant]
     Dosage: 1 SHEET
     Route: 050
     Dates: start: 20070615
  5. SELTOUCH [Concomitant]
     Dosage: 1 SHEET
     Route: 050
     Dates: start: 20070615
  6. MAGMITT [Concomitant]
     Dosage: 250 MG ONCE OR THREE TIMES A DAY
     Route: 048
     Dates: start: 20070615
  7. MUCOSOLVAN [Concomitant]
     Route: 048
     Dates: start: 20070615
  8. POLARAMINE [Concomitant]
     Route: 048
     Dates: start: 20070615
  9. ALTAT [Concomitant]
     Dosage: 2 CAPSULES
     Route: 048
     Dates: start: 20070615
  10. XANBON [Concomitant]
     Indication: ANTIPLATELET THERAPY
     Route: 042
     Dates: start: 20070615, end: 20070618
  11. XANBON [Concomitant]
     Route: 042
     Dates: start: 20070619, end: 20070621
  12. HEPARIN SODIUM [Concomitant]
     Indication: ANTIPLATELET THERAPY
     Dosage: 5000 IU
     Route: 042
     Dates: start: 20070615, end: 20070622
  13. CLOPIDOGREL [Suspect]
     Indication: LACUNAR INFARCTION
     Route: 048
     Dates: start: 20070615, end: 20070706

REACTIONS (1)
  - DEATH [None]
